FAERS Safety Report 10650458 (Version 3)
Quarter: 2015Q4

REPORT INFORMATION
  Report Type: Spontaneous
  Country: US (occurrence: US)
  Receive Date: 20141213
  Receipt Date: 20151107
  Transmission Date: 20160304
  Serious: No
  Sender: FDA-Public Use
  Company Number: US-BAUSCH-SYM-2014-22052

PATIENT
  Age: 37 Year
  Sex: Female

DRUGS (6)
  1. XENAZINE [Suspect]
     Active Substance: TETRABENAZINE
     Indication: HUNTINGTON^S DISEASE
     Dosage: 1 TABLET EVERY MORNING
     Route: 048
     Dates: start: 20140320
  2. XENAZINE [Suspect]
     Active Substance: TETRABENAZINE
     Dosage: 6.25 MG EVERY LUNCH TIME
     Route: 048
     Dates: start: 20150306
  3. XENAZINE [Suspect]
     Active Substance: TETRABENAZINE
     Dosage: 0.5 TABLETS TWICE DAILY
     Dates: start: 2015
  4. XENAZINE [Suspect]
     Active Substance: TETRABENAZINE
     Dosage: (6.25 MG) EVERY NOON TIME AND EVERY EVENING
     Route: 048
     Dates: start: 20140320
  5. XENAZINE [Suspect]
     Active Substance: TETRABENAZINE
     Dosage: 1.5 TABLETS DAILY
     Route: 048
     Dates: start: 20150320
  6. XENAZINE [Suspect]
     Active Substance: TETRABENAZINE
     Dosage: 12.5 MG EVERY MORNING
     Route: 048
     Dates: start: 20150306

REACTIONS (5)
  - Unevaluable event [Unknown]
  - Emotional disorder [Unknown]
  - Anxiety [Unknown]
  - Mood swings [Unknown]
  - Medication error [Not Recovered/Not Resolved]

NARRATIVE: CASE EVENT DATE: 201405
